FAERS Safety Report 12854047 (Version 2)
Quarter: 2016Q4

REPORT INFORMATION
  Report Type: Spontaneous
  Country: US (occurrence: US)
  Receive Date: 20161017
  Receipt Date: 20161026
  Transmission Date: 20170207
  Serious: No
  Sender: FDA-Public Use
  Company Number: US-BAYER-2016-199252

PATIENT
  Age: 68 Year
  Sex: Female
  Weight: 72.56 kg

DRUGS (4)
  1. MIRALAX [Suspect]
     Active Substance: POLYETHYLENE GLYCOL 3350
     Indication: GASTROINTESTINAL DISORDER POSTOPERATIVE
     Dosage: 2 DF, IN 12 HOURS
     Dates: start: 20161012, end: 20161013
  2. MIRALAX [Suspect]
     Active Substance: POLYETHYLENE GLYCOL 3350
     Indication: GASTROINTESTINAL DISORDER POSTOPERATIVE
     Dosage: 1 DF, QD
     Route: 048
     Dates: start: 2006
  3. TOPROL XL [Concomitant]
     Active Substance: METOPROLOL SUCCINATE
     Dosage: UNK UNK, QD
  4. XANAX [Concomitant]
     Active Substance: ALPRAZOLAM
     Dosage: 0.5 DF, UNK

REACTIONS (3)
  - Insomnia [Not Recovered/Not Resolved]
  - Infrequent bowel movements [Unknown]
  - Product use issue [Unknown]

NARRATIVE: CASE EVENT DATE: 2006
